FAERS Safety Report 24254796 (Version 3)
Quarter: 2025Q3

REPORT INFORMATION
  Report Type: Report from Study
  Country: US (occurrence: US)
  Receive Date: 20240827
  Receipt Date: 20250809
  Transmission Date: 20251020
  Serious: Yes (Other)
  Sender: ALEXION PHARMACEUTICALS
  Company Number: 2024A190057

PATIENT
  Sex: Female
  Weight: 185.5 kg

DRUGS (13)
  1. CALQUENCE [Suspect]
     Active Substance: ACALABRUTINIB
     Indication: Chronic lymphocytic leukaemia
     Dosage: 100 MILLIGRAM, BID
     Dates: start: 20220104
  2. CHOLECALCIFEROL [Concomitant]
     Active Substance: CHOLECALCIFEROL
  3. LAMOTRIGINE [Concomitant]
     Active Substance: LAMOTRIGINE
  4. DULOXETINE [Concomitant]
     Active Substance: DULOXETINE
  5. TRAVOPROST [Concomitant]
     Active Substance: TRAVOPROST
  6. ZONISAMIDE [Concomitant]
     Active Substance: ZONISAMIDE
  7. FERROUS SULFATE [Concomitant]
     Active Substance: FERROUS SULFATE
  8. ATORVASTATIN [Concomitant]
     Active Substance: ATORVASTATIN
  9. Dorzomide [Concomitant]
  10. GABAPENTIN [Concomitant]
     Active Substance: GABAPENTIN
  11. MECLIZINE [Concomitant]
     Active Substance: MECLIZINE HYDROCHLORIDE
  12. ASPIRIN [Concomitant]
     Active Substance: ASPIRIN
  13. BRIMONIDINE [Concomitant]
     Active Substance: BRIMONIDINE TARTRATE

REACTIONS (9)
  - Fall [Unknown]
  - Limb injury [Unknown]
  - Glaucoma [Unknown]
  - Contusion [Unknown]
  - Emotional disorder [Unknown]
  - Eye disorder [Unknown]
  - Visual impairment [Unknown]
  - Pain [Unknown]
  - Diarrhoea [Unknown]
